FAERS Safety Report 5055512-7 (Version None)
Quarter: 2006Q3

REPORT INFORMATION
  Report Type: 
  Country: None (occurrence: None)
  Receive Date: 20060717
  Receipt Date: 20060717
  Transmission Date: 20061208
  Serious: Yes (Other)
  Sender: FDA-Public Use
  Company Number: None

PATIENT
  Age: 73 Year
  Sex: Female
  Weight: 67.586 kg

DRUGS (1)
  1. KETEK [Suspect]
     Indication: SINUSITIS
     Dosage: 800MG  DAILY  P.O.
     Route: 048
     Dates: start: 20060603, end: 20060623

REACTIONS (3)
  - FAECES DISCOLOURED [None]
  - FLANK PAIN [None]
  - HEPATITIS ACUTE [None]
